FAERS Safety Report 9342251 (Version 6)
Quarter: 2014Q1

REPORT INFORMATION
  Report Type: Report from Study
  Country: AT (occurrence: AT)
  Receive Date: 20130611
  Receipt Date: 20140131
  Transmission Date: 20141002
  Serious: Yes (Hospitalization, Other)
  Sender: FDA-Public Use
  Company Number: AT-AMGEN-AUTNI2013040213

PATIENT
  Age: 74 Year
  Sex: Male

DRUGS (4)
  1. DENOSUMAB [Suspect]
     Indication: METASTASES TO BONE
     Dosage: 120 MG, QMO
     Route: 058
     Dates: start: 20130221, end: 201304
  2. ZOLEDRONIC ACID [Concomitant]
     Dosage: 4 MG, QMO
     Route: 042
     Dates: start: 20130221, end: 20130605
  3. DOCETAXEL [Concomitant]
     Indication: NEOPLASM
     Dosage: UNK
     Dates: start: 20130219, end: 20130604
  4. PREDNISOLON [Concomitant]
     Indication: NEOPLASM
     Dosage: 5 MG, UNK
     Dates: start: 20130219, end: 20130604

REACTIONS (1)
  - Osteonecrosis of jaw [Recovered/Resolved]
